FAERS Safety Report 18902047 (Version 2)
Quarter: 2021Q1

REPORT INFORMATION
  Report Type: Spontaneous
  Country: US (occurrence: US)
  Receive Date: 20210217
  Receipt Date: 20210227
  Transmission Date: 20210420
  Serious: Yes (Life-Threatening, Hospitalization, Other)
  Sender: FDA-Public Use
  Company Number: US-LUPIN PHARMACEUTICALS INC.-2021-01825

PATIENT
  Age: 84 Year
  Sex: Female

DRUGS (3)
  1. ALTEPLASE. [Interacting]
     Active Substance: ALTEPLASE
     Dosage: 0.81 MILLIGRAM/KILOGRAM (INTRAVENOUS INFUSION OF THE REMAINING DOSE)
     Route: 041
  2. LISINOPRIL. [Suspect]
     Active Substance: LISINOPRIL
     Indication: HYPERTENSION
     Dosage: UNK
     Route: 065
  3. ALTEPLASE. [Interacting]
     Active Substance: ALTEPLASE
     Indication: CEREBRAL INFARCTION
     Dosage: 0.09 MILLIGRAM/KILOGRAM (10% AS A BOLUS)
     Route: 040

REACTIONS (2)
  - Drug interaction [Unknown]
  - Angioedema [Recovering/Resolving]
